FAERS Safety Report 7483438-8 (Version None)
Quarter: 2011Q2

REPORT INFORMATION
  Report Type: 
  Country: None (occurrence: None)
  Receive Date: 20110517
  Receipt Date: 20110510
  Transmission Date: 20111010
  Serious: Yes (Hospitalization)
  Sender: FDA-Public Use
  Company Number: IT-ELI_LILLY_AND_COMPANY-IT201105002756

PATIENT
  Sex: Male

DRUGS (2)
  1. CENTRUM [Concomitant]
     Indication: VITAMIN SUPPLEMENTATION
  2. CIALIS [Suspect]
     Indication: PERFORMANCE FEAR
     Dosage: 10 MG, PRN
     Dates: start: 20090101, end: 20110314

REACTIONS (2)
  - ASTHENIA [None]
  - PANCYTOPENIA [None]
